FAERS Safety Report 8154859-5 (Version None)
Quarter: 2012Q1

REPORT INFORMATION
  Report Type: 
  Country: None (occurrence: None)
  Receive Date: 20120221
  Receipt Date: 20120214
  Transmission Date: 20120608
  Serious: Yes (Life-Threatening, Hospitalization)
  Sender: FDA-Public Use
  Company Number: PHHY2012CA011915

PATIENT
  Sex: Female

DRUGS (4)
  1. LITHIUM CARBONATE [Concomitant]
     Indication: BIPOLAR DISORDER
     Dosage: 900 MG, QHS
  2. VALPROIC ACID [Concomitant]
     Indication: BIPOLAR DISORDER
     Dosage: 750 MG, BID
  3. CLOZARIL [Suspect]
     Indication: SCHIZOAFFECTIVE DISORDER
     Dosage: 200 MG, QHS
     Route: 048
     Dates: start: 20110912, end: 20111108
  4. ABILIFY [Concomitant]
     Indication: BIPOLAR DISORDER
     Dosage: 15 MG,QAH

REACTIONS (2)
  - INFECTION [None]
  - RENAL FAILURE [None]
